FAERS Safety Report 15493387 (Version 1)
Quarter: 2018Q4

REPORT INFORMATION
  Report Type: Spontaneous
  Country: US (occurrence: US)
  Receive Date: 20181004
  Receipt Date: 20181004
  Transmission Date: 20190205
  Serious: Yes (Other)
  Sender: FDA-Public Use
  Company Number: None

PATIENT
  Age: 79 Year
  Sex: Female
  Weight: 79.65 kg

DRUGS (14)
  1. PEPCID COMPLETE [Concomitant]
     Active Substance: CALCIUM CARBONATE\FAMOTIDINE\MAGNESIUM HYDROXIDE
  2. CENTRAM SILVER [Concomitant]
  3. NASACORT [Concomitant]
     Active Substance: TRIAMCINOLONE ACETONIDE
  4. GAVISCON [Concomitant]
     Active Substance: ALUMINUM HYDROXIDE\MAGNESIUM CARBONATE
  5. DOXYCYCLENE [Concomitant]
  6. OMEGA 3 [Concomitant]
     Active Substance: OMEGA-3 FATTY ACIDS
  7. CLONIDINE. [Concomitant]
     Active Substance: CLONIDINE
  8. QUNOL [Concomitant]
  9. ADVIL [Concomitant]
     Active Substance: IBUPROFEN
  10. CLONIDINE TRANSDERMAL SYSTEM [Suspect]
     Active Substance: CLONIDINE
     Indication: HYPERTENSION
     Dosage: ?          QUANTITY:1 PATCH(ES);OTHER FREQUENCY:WEEKLY;?
     Route: 062
     Dates: start: 20181003, end: 20181003
  11. HCTZ [Concomitant]
     Active Substance: HYDROCHLOROTHIAZIDE
  12. XANAX [Concomitant]
     Active Substance: ALPRAZOLAM
  13. CALCIUM [Concomitant]
     Active Substance: CALCIUM
  14. NEXIUM [Concomitant]
     Active Substance: ESOMEPRAZOLE MAGNESIUM

REACTIONS (4)
  - Blood pressure increased [None]
  - Throat tightness [None]
  - Heart rate increased [None]
  - Product substitution issue [None]

NARRATIVE: CASE EVENT DATE: 20181003
